FAERS Safety Report 5641797-2 (Version None)
Quarter: 2008Q1

REPORT INFORMATION
  Report Type: 
  Country: None (occurrence: None)
  Receive Date: 20080227
  Receipt Date: 20080219
  Transmission Date: 20080703
  Serious: Yes (Hospitalization)
  Sender: FDA-Public Use
  Company Number: PHHO2008IT01477

PATIENT
  Age: 42 Year
  Sex: Male
  Weight: 82 kg

DRUGS (7)
  1. MYFORTIC [Suspect]
     Indication: RENAL TRANSPLANT
     Dosage: 200 MG, BID
     Route: 048
     Dates: start: 20070716
  2. ZANTAC 150 [Concomitant]
     Indication: PROPHYLAXIS
  3. BACTRIM [Concomitant]
     Indication: PROPHYLAXIS
  4. OMNIC [Concomitant]
     Indication: PROPHYLAXIS
  5. MEDROL [Concomitant]
     Indication: PROPHYLAXIS
  6. MYFORTIC [Suspect]
     Indication: RENAL TRANSPLANT
     Dosage: 320 UNK, BID
     Route: 048
     Dates: start: 20071026, end: 20071108
  7. MYFORTIC [Suspect]
     Dosage: 720 MG, BID
     Route: 048
     Dates: start: 20071109

REACTIONS (6)
  - ANAEMIA [None]
  - HAEMORRHOIDAL HAEMORRHAGE [None]
  - HAEMORRHOIDS [None]
  - HYPOSIDERAEMIA [None]
  - OCCULT BLOOD POSITIVE [None]
  - RECTAL HAEMORRHAGE [None]
